FAERS Safety Report 8809352 (Version 2)
Quarter: 2012Q4

REPORT INFORMATION
  Report Type: 
  Country: CA (occurrence: CA)
  Receive Date: 20120926
  Receipt Date: 20121011
  Transmission Date: 20130627
  Serious: Yes (Death, Other)
  Sender: FDA-Public Use
  Company Number: CA-INCYTE CORPORATION-2012IN001830

PATIENT
  Age: 60 Year
  Sex: Male

DRUGS (2)
  1. JAKAVI [Suspect]
     Indication: POLYCYTHAEMIA
     Dosage: 20 mg, bid
     Route: 048
     Dates: start: 20120825, end: 20120910
  2. JAKAVI [Suspect]
     Indication: MYELOFIBROSIS

REACTIONS (6)
  - Death [Fatal]
  - Hypertension [Unknown]
  - Phlebitis [Unknown]
  - Nausea [Unknown]
  - Abdominal pain [Unknown]
  - Headache [Unknown]
